FAERS Safety Report 9120986 (Version 3)
Quarter: 2015Q3

REPORT INFORMATION
  Report Type: Report from Study
  Country: BE (occurrence: BE)
  Receive Date: 20130226
  Receipt Date: 20150928
  Transmission Date: 20151125
  Serious: Yes (Hospitalization, Other)
  Sender: FDA-Public Use
  Company Number: BE-GLAXOSMITHKLINE-Z0018008B

PATIENT
  Age: 79 Year
  Sex: Female
  Weight: 66 kg

DRUGS (9)
  1. AUGMENTIN [Concomitant]
     Active Substance: AMOXICILLIN\CLAVULANATE POTASSIUM
     Dosage: 2 G, BID
     Route: 048
     Dates: start: 20130220, end: 20130225
  2. OFATUMUMAB [Suspect]
     Active Substance: OFATUMUMAB
     Indication: NON-HODGKIN^S LYMPHOMA
     Dosage: 1000 MG, CYC
     Route: 042
     Dates: start: 20121107
  3. BENDAMUSTINE [Suspect]
     Active Substance: BENDAMUSTINE
     Indication: NON-HODGKIN^S LYMPHOMA
     Dosage: 90 MG/M2 CYCLIC
     Route: 042
     Dates: start: 20121107
  4. PARACETAMOL [Concomitant]
     Active Substance: ACETAMINOPHEN
     Indication: JAW FRACTURE
     Dosage: 1 G, PRN
     Route: 048
     Dates: start: 20130216, end: 20130219
  5. PARACETAMOL [Concomitant]
     Active Substance: ACETAMINOPHEN
     Dosage: 1 G, PRN
     Route: 048
     Dates: start: 20130222, end: 201303
  6. STEOVIT D3 [Concomitant]
     Active Substance: CALCIUM CARBONATE\CHOLECALCIFEROL
     Dosage: 1000 MG, 1D
     Route: 048
     Dates: start: 20130517
  7. ZOLPIDEM [Suspect]
     Active Substance: ZOLPIDEM\ZOLPIDEM TARTRATE
     Indication: INSOMNIA
     Dosage: 10 MG, 1D
     Route: 048
     Dates: start: 20100204
  8. STEOVIT D3 [Concomitant]
     Indication: JAW FRACTURE
     Dosage: 1000 MG, 1D
     Route: 048
     Dates: start: 20130222, end: 20130513
  9. AUGMENTIN [Concomitant]
     Active Substance: AMOXICILLIN\CLAVULANATE POTASSIUM
     Indication: PROPHYLAXIS
     Dosage: 2 G, 1D
     Route: 048
     Dates: start: 20130219, end: 20130219

REACTIONS (1)
  - Jaw fracture [Recovered/Resolved]

NARRATIVE: CASE EVENT DATE: 20130216
